FAERS Safety Report 6201579-X (Version None)
Quarter: 2009Q2

REPORT INFORMATION
  Report Type: 
  Country: None (occurrence: None)
  Receive Date: 20090526
  Receipt Date: 20090519
  Transmission Date: 20091009
  Serious: Yes (Disabling, Other)
  Sender: FDA-Public Use
  Company Number: US-ROCHE-567104

PATIENT
  Sex: Female
  Weight: 62.6 kg

DRUGS (1)
  1. BONIVA [Suspect]
     Indication: OSTEOPENIA
     Dosage: RECEIVED ONLY ONE DOSE
     Route: 048
     Dates: start: 20080210, end: 20080301

REACTIONS (8)
  - ARTHRITIS [None]
  - ARTHROPATHY [None]
  - BONE PAIN [None]
  - INFLUENZA LIKE ILLNESS [None]
  - MUSCLE TWITCHING [None]
  - NAUSEA [None]
  - OSTEOARTHRITIS [None]
  - VOMITING [None]
